FAERS Safety Report 7247177-0 (Version None)
Quarter: 2011Q1

REPORT INFORMATION
  Report Type: 
  Country: None (occurrence: None)
  Receive Date: 20110127
  Receipt Date: 20110120
  Transmission Date: 20110831
  Serious: Yes (Hospitalization)
  Sender: FDA-Public Use
  Company Number: US-JNJFOC-20110105776

PATIENT
  Sex: Female
  Weight: 53.52 kg

DRUGS (4)
  1. NORCO [Concomitant]
     Indication: BREAKTHROUGH PAIN
     Dosage: 10/325 MG
     Route: 048
  2. TRAZODONE [Concomitant]
     Indication: SLEEP DISORDER
     Route: 048
  3. DURAGESIC-50 [Suspect]
     Indication: BACK PAIN
     Dosage: 100 AND 25 UG/HR
     Route: 062
  4. DURAGESIC-50 [Suspect]
     Dosage: 100 AND 25UG/HR
     Route: 062

REACTIONS (7)
  - DRUG ADMINISTERED AT INAPPROPRIATE SITE [None]
  - WITHDRAWAL SYNDROME [None]
  - BACK DISORDER [None]
  - GASTROOESOPHAGEAL REFLUX DISEASE [None]
  - WRONG TECHNIQUE IN DRUG USAGE PROCESS [None]
  - THERAPEUTIC RESPONSE DECREASED [None]
  - PRODUCT ADHESION ISSUE [None]
